FAERS Safety Report 4599670-7 (Version None)
Quarter: 2005Q1

REPORT INFORMATION
  Report Type: 
  Country: None (occurrence: None)
  Receive Date: 20050302
  Receipt Date: 20050218
  Transmission Date: 20050727
  Serious: Yes (Other)
  Sender: FDA-Public Use
  Company Number: GBWYE447222FEB05

PATIENT
  Age: 61 Year
  Sex: Female

DRUGS (22)
  1. EFFEXOR XR [Suspect]
     Indication: PAIN
     Dosage: 75 MG 1X PER 1 DAY
     Route: 048
     Dates: start: 20041231
  2. LYRICA [Suspect]
     Indication: PAIN
     Dosage: 150 MG 2X PER 1 DAY
     Route: 048
     Dates: start: 20041231, end: 20050201
  3. AMITRIPTYLINE (AMITRIPTYLINE) [Concomitant]
  4. DIHYDROCODEINE (DIHYDROCODEINE) [Concomitant]
  5. CO-CODAMOL (CODEINE PHOSPHATE/PARACETAMOL) [Concomitant]
  6. GAVISCON ADVANCE (POTASSIUM BICARBONATE/SODIUM ALGINATE) [Concomitant]
  7. LIDOCAINE [Concomitant]
  8. DEPO-MEDROL [Concomitant]
  9. TRANSVASIN (BENZOCAINE/ETHYL NICOTINATE/HEXYL NICOTINATE/THURFYL SALIC [Concomitant]
  10. MONO-TILDIEM - SLOW RELEASE (DILTIAZEM HYDROCHLORIDE) [Concomitant]
  11. HUMAN MIXTARD 30 GE (INSULIN INJECTION, BIPHASIC) [Concomitant]
  12. NICORANDIL (NICORANDIL) [Concomitant]
  13. CLOPIDOGREL BISULFATE [Concomitant]
  14. ASPIRIN [Concomitant]
  15. NIZATIDINE [Concomitant]
  16. ATORVASTATIN CALCIUM [Concomitant]
  17. BENDROFLUAZIDE (BENDROFLUMETHIAZIDE) [Concomitant]
  18. RAMIPRIL [Concomitant]
  19. ZOPICLONE (ZOPICLONE) [Concomitant]
  20. GTN (GLYCERYL TRINITRATE) [Concomitant]
  21. ACETAMINOPHEN [Concomitant]
  22. GAVISCON [Concomitant]

REACTIONS (6)
  - AGITATION [None]
  - CONFUSIONAL STATE [None]
  - EMOTIONAL DISTRESS [None]
  - FEAR [None]
  - HALLUCINATION [None]
  - PANIC ATTACK [None]
